FAERS Safety Report 17525579 (Version 1)
Quarter: 2020Q1

REPORT INFORMATION
  Report Type: Spontaneous
  Country: FR (occurrence: FR)
  Receive Date: 20200311
  Receipt Date: 20200311
  Transmission Date: 20200409
  Serious: Yes (Hospitalization, Other)
  Sender: FDA-Public Use
  Company Number: FR-AMGEN-FRASP2020036641

PATIENT
  Age: 70 Year
  Sex: Female
  Weight: 60 kg

DRUGS (2)
  1. PROLIA [Suspect]
     Active Substance: DENOSUMAB
     Indication: OSTEOPONTIN
     Dosage: 60 MILLIGRAM, Q6MO
     Route: 058
     Dates: start: 201604, end: 201804
  2. RITUXIMAB. [Concomitant]
     Active Substance: RITUXIMAB

REACTIONS (2)
  - Spinal fracture [Recovered/Resolved with Sequelae]
  - Paradoxical drug reaction [Recovered/Resolved]

NARRATIVE: CASE EVENT DATE: 201811
